FAERS Safety Report 8269740-0 (Version None)
Quarter: 2012Q2

REPORT INFORMATION
  Report Type: 
  Country: None (occurrence: None)
  Receive Date: 20120405
  Receipt Date: 20120322
  Transmission Date: 20120825
  Serious: Yes (Other)
  Sender: FDA-Public Use
  Company Number: 2012-00169

PATIENT
  Age: 72 Year
  Sex: Male
  Weight: 84.369 kg

DRUGS (9)
  1. LISINOPRIL [Suspect]
     Indication: HYPERTENSION
     Dosage: 40 MG (20 MG, 2 IN 1 D), PER ORAL; 40 MG (20 MG, 2 IN 1 D), PER ORAL; 3 DOSAGE FORMS FROM NEW BATCH
     Route: 048
     Dates: start: 20120207
  2. LISINOPRIL [Suspect]
     Indication: HYPERTENSION
     Dosage: 40 MG (20 MG, 2 IN 1 D), PER ORAL; 40 MG (20 MG, 2 IN 1 D), PER ORAL; 3 DOSAGE FORMS FROM NEW BATCH
     Route: 048
     Dates: start: 20120210, end: 20120215
  3. LISINOPRIL [Suspect]
     Indication: HYPERTENSION
     Dosage: 40 MG (20 MG, 2 IN 1 D), PER ORAL; 40 MG (20 MG, 2 IN 1 D), PER ORAL; 3 DOSAGE FORMS FROM NEW BATCH
     Route: 048
     Dates: start: 20120201
  4. METOPROLOL SUCCINATE [Concomitant]
  5. DUTASTERIDE (AVODART) [Concomitant]
  6. FLOMAX [Concomitant]
  7. ATORVASTATIN [Concomitant]
  8. PLAVIX [Concomitant]
  9. NIFEDIPINE (NEFEDIAC) [Concomitant]

REACTIONS (4)
  - PRODUCT QUALITY ISSUE [None]
  - BLOOD PRESSURE INADEQUATELY CONTROLLED [None]
  - HYPERTENSION [None]
  - ARTERIAL OCCLUSIVE DISEASE [None]
